FAERS Safety Report 24333337 (Version 1)
Quarter: 2024Q3

REPORT INFORMATION
  Report Type: Spontaneous
  Country: CN (occurrence: CN)
  Receive Date: 20240918
  Receipt Date: 20240918
  Transmission Date: 20241017
  Serious: Yes (Hospitalization, Other)
  Sender: BAXTER
  Company Number: None

PATIENT
  Age: 66 Year
  Sex: Male
  Weight: 90 kg

DRUGS (8)
  1. CYCLOPHOSPHAMIDE [Suspect]
     Active Substance: CYCLOPHOSPHAMIDE
     Indication: Diffuse large B-cell lymphoma
     Dosage: 1.2 G, ONE TIME IN ONE DAY, DAY 1, DILUTED WITH 500 ML OF 0.9% SODIUM CHLORIDE, AS A PART OF R-CHOP
     Route: 041
     Dates: start: 20240818, end: 20240818
  2. SODIUM CHLORIDE [Suspect]
     Active Substance: SODIUM CHLORIDE
     Indication: Medication dilution
     Dosage: 500 ML, ONE TIME IN ONE DAY, DAY 1, STRENGTH: 0.9%, USED TO DILUTE 1.2 G OF CYCLOPHOSPHAMIDE
     Route: 041
     Dates: start: 20240818, end: 20240818
  3. SODIUM CHLORIDE [Suspect]
     Active Substance: SODIUM CHLORIDE
     Dosage: 100 ML, ONE TIME IN ONE DAY, DAY 0, STRENGTH: 0.9%, USED TO DILUTE 700 MG OF RITUXIMAB
     Route: 041
     Dates: start: 20240817, end: 20240817
  4. SODIUM CHLORIDE [Suspect]
     Active Substance: SODIUM CHLORIDE
     Dosage: 250 ML, ONE TIME IN ONE DAY, DAY 1-2, STRENGTH: 0.9%, USED TO DILUTE 1 MG OF VINCRISTINE SULFATE
     Route: 041
     Dates: start: 20240818, end: 20240819
  5. RITUXIMAB [Suspect]
     Active Substance: RITUXIMAB
     Indication: Diffuse large B-cell lymphoma
     Dosage: 0.7 G, ONE TIME IN ONE DAY, DAY 0, DILUTED WITH 100 ML OF 0.9% SODIUM CHLORIDE, AS A PART OF R-CHOP
     Route: 041
     Dates: start: 20240817, end: 20240817
  6. VINCRISTINE SULFATE [Suspect]
     Active Substance: VINCRISTINE SULFATE
     Indication: Diffuse large B-cell lymphoma
     Dosage: 1 MG, ONE TIME IN ONE DAY, DAY 1-2, DILUTED WITH 250 ML OF 0.9% SODIUM CHLORIDE, AS A PART OF R-CHOP
     Route: 041
     Dates: start: 20240818, end: 20240819
  7. DOXORUBICIN HYDROCHLORIDE [Suspect]
     Active Substance: DOXORUBICIN HYDROCHLORIDE
     Indication: Diffuse large B-cell lymphoma
     Dosage: 60 MG, ONE TIME IN ONE DAY, DAY 1, DILUTED WITH 100 ML OF 0.5% GLUCOSE, AS A PART OF R-CHOP REGIMEN
     Route: 041
     Dates: start: 20240818, end: 20240818
  8. DEXTROSE [Suspect]
     Active Substance: DEXTROSE\DEXTROSE MONOHYDRATE
     Indication: Medication dilution
     Dosage: 100 ML, ONE TIME IN ONE DAY, DAY 1, STRENGTH: 0.5 %, USED TO DILUTE 60 MG OF DOXORUBICIN HYDROCHLORI
     Route: 041
     Dates: start: 20240818, end: 20240818

REACTIONS (3)
  - Myelosuppression [Recovering/Resolving]
  - Pyrexia [Recovered/Resolved]
  - White blood cell count decreased [Recovering/Resolving]

NARRATIVE: CASE EVENT DATE: 20240826
